FAERS Safety Report 12635104 (Version 2)
Quarter: 2016Q3

REPORT INFORMATION
  Report Type: Report from Study
  Country: BR (occurrence: BR)
  Receive Date: 20160809
  Receipt Date: 20160823
  Transmission Date: 20161109
  Serious: Yes (Hospitalization)
  Sender: FDA-Public Use
  Company Number: BR-JNJFOC-20160804785

PATIENT
  Sex: Female

DRUGS (3)
  1. PANTOPRAZOL [Concomitant]
     Active Substance: PANTOPRAZOLE SODIUM
     Route: 065
  2. PREDNISONE. [Concomitant]
     Active Substance: PREDNISONE
     Route: 065
  3. REMICADE [Suspect]
     Active Substance: INFLIXIMAB
     Indication: COLITIS ULCERATIVE
     Dosage: PATIENT USED ON WEEKS 0 AND 2
     Route: 042
     Dates: start: 201606, end: 201606

REACTIONS (7)
  - Drug ineffective [Unknown]
  - Pain [Unknown]
  - Hypotension [Unknown]
  - Procedural pain [Unknown]
  - Presyncope [Unknown]
  - Muscle spasms [Unknown]
  - Colitis ulcerative [Unknown]
